FAERS Safety Report 8909578 (Version 2)
Quarter: 2013Q4

REPORT INFORMATION
  Report Type: Report from Study
  Country: DE (occurrence: DE)
  Receive Date: 20121115
  Receipt Date: 20131231
  Transmission Date: 20140711
  Serious: Yes (Hospitalization)
  Sender: FDA-Public Use
  Company Number: DE-ROCHE-1153854

PATIENT
  Age: 67 Year
  Sex: Male
  Weight: 86.9 kg

DRUGS (1)
  1. BEVACIZUMAB [Suspect]
     Indication: COLORECTAL CANCER METASTATIC
     Dosage: LAST DOSE PRIOR TO SAE 17/OCT/2012
     Route: 042
     Dates: start: 20101228

REACTIONS (1)
  - Retinal detachment [Recovered/Resolved with Sequelae]
